FAERS Safety Report 8965087 (Version 1)
Quarter: 2012Q4

REPORT INFORMATION
  Report Type: 
  Country: US (occurrence: US)
  Receive Date: 20121213
  Receipt Date: 20121213
  Transmission Date: 20130627
  Serious: No
  Sender: FDA-Public Use
  Company Number: US-BRISTOL-MYERS SQUIBB COMPANY-16656126

PATIENT
  Age: 63 Year
  Sex: Female

DRUGS (5)
  1. PRAVACHOL [Suspect]
  2. LISINOPRIL [Suspect]
  3. ZOLOFT [Suspect]
  4. LIPITOR [Suspect]
  5. AVANDIA [Suspect]

REACTIONS (4)
  - Swelling [Unknown]
  - Cough [Unknown]
  - Myalgia [Unknown]
  - Drug hypersensitivity [Unknown]
